FAERS Safety Report 11654551 (Version 1)
Quarter: 2015Q4

REPORT INFORMATION
  Report Type: Spontaneous
  Country: US (occurrence: None)
  Receive Date: 20151022
  Receipt Date: 20151022
  Transmission Date: 20160304
  Serious: No
  Sender: FDA-Public Use
  Company Number: None

PATIENT
  Age: 59 Year
  Sex: Male

DRUGS (1)
  1. CYCLOSPORINE 100MG [Suspect]
     Active Substance: CYCLOSPORINE
     Dates: start: 201508

REACTIONS (2)
  - Alopecia [None]
  - Nausea [None]

NARRATIVE: CASE EVENT DATE: 20151010
